FAERS Safety Report 9196761 (Version 2)
Quarter: 2013Q2

REPORT INFORMATION
  Report Type: Spontaneous
  Country: JP (occurrence: JP)
  Receive Date: 20130328
  Receipt Date: 20130422
  Transmission Date: 20140414
  Serious: Yes (Hospitalization)
  Sender: FDA-Public Use
  Company Number: JP-009507513-1303JPN010582

PATIENT
  Age: 72 Year
  Sex: Female
  Weight: 43 kg

DRUGS (101)
  1. PEGINTRON [Suspect]
     Indication: CHRONIC HEPATITIS C
     Dosage: 1.5 MICROGRAM PER KILOGRAM, QW
     Route: 058
     Dates: start: 20121113, end: 20130207
  2. REBETOL [Suspect]
     Indication: CHRONIC HEPATITIS C
     Dosage: 400 MG, QD
     Route: 048
     Dates: start: 20121113, end: 20121127
  3. REBETOL [Suspect]
     Dosage: 800 MG, QD
     Route: 048
     Dates: start: 20121128, end: 20121128
  4. REBETOL [Suspect]
     Dosage: 400 MG, QD
     Route: 048
     Dates: start: 20121129, end: 20121211
  5. REBETOL [Suspect]
     Dosage: 400 MG, QD
     Route: 048
     Dates: start: 20121213, end: 20130213
  6. TELAVIC [Suspect]
     Indication: CHRONIC HEPATITIS C
     Dosage: 1500 MG, QD
     Route: 048
     Dates: start: 20121113, end: 20121127
  7. TELAVIC [Suspect]
     Dosage: 3000 MG, QD
     Route: 048
     Dates: start: 20121128, end: 20121128
  8. TELAVIC [Suspect]
     Dosage: 1500 MG, QD
     Route: 048
     Dates: start: 20121129, end: 20121211
  9. TELAVIC [Suspect]
     Dosage: 1500 MG, QD
     Route: 048
     Dates: start: 20121227, end: 20130101
  10. TELAVIC [Suspect]
     Dosage: 1000 MG, QD
     Route: 048
     Dates: start: 20130102, end: 20130109
  11. TELAVIC [Suspect]
     Dosage: 1500 MG, QD
     Route: 048
     Dates: start: 20130110, end: 20130115
  12. TELAVIC [Suspect]
     Dosage: 1000 MG, QD
     Route: 048
     Dates: start: 20130116, end: 20130123
  13. TELAVIC [Suspect]
     Dosage: 1500 MG, QD
     Route: 048
     Dates: start: 20130124, end: 20130129
  14. TELAVIC [Suspect]
     Dosage: 1000 MG, QD
     Route: 048
     Dates: start: 20130130, end: 20130206
  15. CEREKINON [Concomitant]
     Dosage: 300 MG, QD
     Route: 048
     Dates: start: 20121113, end: 20121118
  16. CEREKINON [Concomitant]
     Dosage: 600 MG, QD
     Route: 048
     Dates: start: 20121119, end: 20121125
  17. CEREKINON [Concomitant]
     Dosage: 300 MG, QD
     Route: 048
     Dates: start: 20121127, end: 20121211
  18. JUZEN-TAIHO-TO [Concomitant]
     Dosage: 7.5 G, QD
     Route: 048
     Dates: start: 20121113, end: 20121127
  19. JUZEN-TAIHO-TO [Concomitant]
     Dosage: 15 G, QD
     Route: 048
     Dates: start: 20121128, end: 20121128
  20. JUZEN-TAIHO-TO [Concomitant]
     Dosage: 7.5 G, QD
     Route: 048
     Dates: start: 20121129, end: 20121211
  21. JUZEN-TAIHO-TO [Concomitant]
     Dosage: 7.5 G, QD
     Route: 048
     Dates: start: 20121213, end: 20130220
  22. LOXONIN [Concomitant]
     Dosage: 180 MG, QD
     Route: 048
     Dates: start: 20121113, end: 20121127
  23. LOXONIN [Concomitant]
     Dosage: 360 MG, QD
     Route: 048
     Dates: start: 20121128, end: 20121128
  24. LOXONIN [Concomitant]
     Dosage: 180 MG, QD
     Route: 048
     Dates: start: 20121129, end: 20121211
  25. LOXONIN [Concomitant]
     Dosage: 180 MG, QD
     Route: 048
     Dates: start: 20121220, end: 20130213
  26. MUCOSTA [Concomitant]
     Dosage: 300 MG, QD
     Route: 048
     Dates: start: 20121113, end: 20121127
  27. MUCOSTA [Concomitant]
     Dosage: 600 MG, QD
     Route: 048
     Dates: start: 20121128, end: 20121128
  28. MUCOSTA [Concomitant]
     Dosage: 300 MG, QD
     Route: 048
     Dates: start: 20121129, end: 20121211
  29. MUCOSTA [Concomitant]
     Dosage: 600 MG, QD
     Route: 048
     Dates: start: 20121220, end: 20130213
  30. MUCOSTA [Concomitant]
     Dosage: 300 MG, QD
     Route: 048
     Dates: start: 20130214, end: 20130220
  31. TAKEPRON [Concomitant]
     Dosage: 15 MG, QD
     Route: 048
     Dates: start: 20121113, end: 20121127
  32. TAKEPRON [Concomitant]
     Dosage: 30 MG, QD
     Route: 048
     Dates: start: 20121128, end: 20121128
  33. TAKEPRON [Concomitant]
     Dosage: 15 MG, QD
     Route: 048
     Dates: start: 20121129, end: 20121211
  34. TAKEPRON [Concomitant]
     Dosage: 15 MG, QD
     Route: 048
     Dates: start: 20121220, end: 20130220
  35. AMLODIN OD [Concomitant]
     Dosage: 5 MG, QD
     Route: 048
     Dates: start: 20121113, end: 20121127
  36. AMLODIN OD [Concomitant]
     Dosage: 10 UNK, UNK
     Route: 048
     Dates: start: 20121128, end: 20121128
  37. AMLODIN OD [Concomitant]
     Dosage: 5 UNK, UNK
     Route: 048
     Dates: start: 20121129, end: 20121211
  38. AMLODIN OD [Concomitant]
     Dosage: 5 MG, QD
     Route: 048
     Dates: start: 20121213, end: 20130213
  39. URSO [Concomitant]
     Dosage: 600 MG, QD
     Route: 048
     Dates: start: 20121113, end: 20121128
  40. MICARDIS [Concomitant]
     Dosage: 40 MG, QD
     Route: 048
     Dates: start: 20121113, end: 20121127
  41. MICARDIS [Concomitant]
     Dosage: 80 MG, QD
     Route: 048
     Dates: start: 20121128, end: 20121128
  42. MICARDIS [Concomitant]
     Dosage: 40 MG, QD
     Route: 048
     Dates: start: 20121129, end: 20121211
  43. MICARDIS [Concomitant]
     Dosage: 40 MG, QD
     Route: 048
     Dates: start: 20121213, end: 20130213
  44. LOXONIN [Concomitant]
     Dosage: DAILY DOSE UNKNOWN
     Route: 061
     Dates: start: 20121116, end: 20121116
  45. NAUZELIN [Concomitant]
     Dosage: 30 MG, QD
     Route: 048
     Dates: start: 20121116, end: 20121121
  46. NAUZELIN [Concomitant]
     Dosage: 30 MG, QD
     Route: 048
     Dates: start: 20121124, end: 20121211
  47. BICARBON (CALCIUM CHLORIDE (+) MAGNESIUM CHLORIDE (+) POTASSIUM CHLORI [Concomitant]
     Dosage: 500 ML, QD
     Route: 041
     Dates: start: 20121118, end: 20121126
  48. BICARBON (CALCIUM CHLORIDE (+) MAGNESIUM CHLORIDE (+) POTASSIUM CHLORI [Concomitant]
     Dosage: 500 ML, QD
     Route: 041
     Dates: start: 20130207, end: 20130207
  49. BICARBON (CALCIUM CHLORIDE (+) MAGNESIUM CHLORIDE (+) POTASSIUM CHLORI [Concomitant]
     Dosage: 500 ML, QD
     Route: 041
     Dates: start: 20130210, end: 20130210
  50. BICARBON (CALCIUM CHLORIDE (+) MAGNESIUM CHLORIDE (+) POTASSIUM CHLORI [Concomitant]
     Dosage: 500 ML, QD
     Route: 041
     Dates: start: 20130214, end: 20130216
  51. BFLUID [Concomitant]
     Dosage: 500 ML, QD
     Route: 041
     Dates: start: 20121118, end: 20121126
  52. PEMIROC [Concomitant]
     Dosage: 1 TUBE/DAY
     Route: 041
     Dates: start: 20121118, end: 20121228
  53. PEMIROC [Concomitant]
     Dosage: 1 TUBE/DAY
     Route: 041
     Dates: start: 20130214, end: 20130227
  54. MYSER (DIFLUPREDNATE) [Concomitant]
     Dosage: 5 G, 5 TUBE
     Route: 061
     Dates: start: 20121119, end: 20121119
  55. RIKKUNSHI-TO [Concomitant]
     Dosage: 2.5 G, QD
     Route: 048
     Dates: start: 20121120, end: 20121120
  56. GASMOTIN [Concomitant]
     Dosage: 15 MG, QD
     Route: 048
     Dates: start: 20121122, end: 20121122
  57. FEBURIC [Concomitant]
     Dosage: 10 MG, QD
     Route: 048
     Dates: start: 20121128, end: 20121211
  58. FEBURIC [Concomitant]
     Dosage: 10 MG, QD
     Route: 048
     Dates: start: 20121213, end: 20130116
  59. FEBURIC [Concomitant]
     Dosage: 20 MG, QD
     Route: 048
     Dates: start: 20130117, end: 20130130
  60. FEBURIC [Concomitant]
     Dosage: 40 MG, QD
     Route: 048
     Dates: start: 20130131, end: 20130213
  61. FEBURIC [Concomitant]
     Dosage: 10 MG, QD
     Route: 048
     Dates: start: 20130215, end: 20130220
  62. LASIX (FUROSEMIDE) [Concomitant]
     Dosage: 10 MG, QD
     Route: 048
     Dates: start: 20121203, end: 20121206
  63. LASIX (FUROSEMIDE) [Concomitant]
     Dosage: 40 MG, QD
     Route: 048
     Dates: start: 20121206, end: 20121212
  64. LASIX (FUROSEMIDE) [Concomitant]
     Dosage: 10 MG, QD
     Route: 048
     Dates: start: 20130107, end: 20130110
  65. LASIX (FUROSEMIDE) [Concomitant]
     Dosage: 40 MG, QD
     Route: 048
     Dates: start: 20130110, end: 20130213
  66. LASIX (FUROSEMIDE) [Concomitant]
     Dosage: 20 MG, QD
     Route: 048
     Dates: start: 20130214, end: 20130214
  67. LASIX (FUROSEMIDE) [Concomitant]
     Dosage: 20 MG, QD
     Route: 048
     Dates: start: 20130216, end: 20130227
  68. ALDACTONE A [Concomitant]
     Dosage: 25 MG, QD
     Route: 048
     Dates: start: 20121203, end: 20121205
  69. ALDACTONE A [Concomitant]
     Dosage: 50 MG, QD
     Route: 048
     Dates: start: 20121206, end: 20121206
  70. ALDACTONE A [Concomitant]
     Dosage: 25 MG, QD
     Route: 048
     Dates: start: 20121207, end: 20121211
  71. ALDACTONE A [Concomitant]
     Dosage: 25 MG, QD
     Route: 048
     Dates: start: 20130110, end: 20130214
  72. ALDACTONE A [Concomitant]
     Dosage: 25 MG, QD
     Route: 048
     Dates: start: 20130216, end: 20130227
  73. ALLELOCK [Concomitant]
     Dosage: 10 MG, QD
     Route: 048
     Dates: start: 20121212, end: 20121217
  74. ALLELOCK [Concomitant]
     Dosage: 10 MG, QD
     Route: 048
     Dates: start: 20130214, end: 20130227
  75. TALION (BEPOTASTINE BESYLATE) [Concomitant]
     Dosage: 10 MG, QD
     Route: 048
     Dates: start: 20121212, end: 20121217
  76. DERMOVATE [Concomitant]
     Dosage: 40 G, QD
     Route: 061
     Dates: start: 20121212, end: 20121212
  77. DERMOVATE [Concomitant]
     Dosage: 50 G, QD
     Route: 061
     Dates: start: 20130214, end: 20130214
  78. DERMOVATE [Concomitant]
     Dosage: 50 G, QD
     Route: 061
     Dates: start: 20130221, end: 20130221
  79. HERBS (UNSPECIFIED) [Concomitant]
     Dosage: 6 G, QD
     Route: 048
     Dates: start: 20121212, end: 20121217
  80. CELESTAMINE (BETAMETHASONE (+) DEXCHLORPHENIRAMINE MALEATE) [Concomitant]
     Dosage: 4 DF, QD
     Route: 048
     Dates: start: 20121212, end: 20121217
  81. GASTER D [Concomitant]
     Dosage: 40 MG, QD
     Route: 048
     Dates: start: 20121212, end: 20121217
  82. METHADERM [Concomitant]
     Dosage: 50 G, 2-3 TIMES A DAY
     Route: 061
     Dates: start: 20121212, end: 20121212
  83. PL-GRANULES [Concomitant]
     Dosage: 3 G, QD
     Route: 048
     Dates: start: 20121213, end: 20121217
  84. PL-GRANULES [Concomitant]
     Dosage: 3 G, QD
     Route: 048
     Dates: start: 20130226, end: 20130303
  85. ISODINE [Concomitant]
     Dosage: 30 ML, QD
     Route: 049
     Dates: start: 20121213, end: 20121213
  86. ISODINE [Concomitant]
     Dosage: 30 ML, QD
     Route: 049
     Dates: start: 20130214, end: 20130214
  87. ISODINE [Concomitant]
     Dosage: 30 ML, QD
     Route: 049
     Dates: start: 20130220, end: 20130221
  88. PETROLATUM, WHITE (+) SALICYLIC ACID [Concomitant]
     Dosage: 40 G, QD
     Route: 061
     Dates: start: 20121218, end: 20121218
  89. MOHRUS [Concomitant]
     Dosage: 5 PACKS, DAILY DOSAGE UNKNOWN
     Route: 061
     Dates: start: 20130107, end: 20130107
  90. RESTAMIN [Concomitant]
     Dosage: 20 G, QD
     Route: 061
     Dates: start: 20130124, end: 20130124
  91. MIRCERA [Concomitant]
     Dosage: 1 DF, QD
     Route: 058
     Dates: start: 20130124, end: 20130124
  92. MIRCERA [Concomitant]
     Dosage: 1 DF, QD 2 TUBES DAY
     Route: 058
     Dates: start: 20130216, end: 20130216
  93. APHTASOLON [Concomitant]
     Dosage: 6 G, QD
     Route: 049
     Dates: start: 20130207, end: 20130207
  94. ANTEBATE [Concomitant]
     Dosage: 5 G, QD
     Route: 061
     Dates: start: 20130214, end: 20130214
  95. ATARAX (HYDROXYZINE HYDROCHLORIDE) [Concomitant]
     Dosage: 20 MG, QD
     Route: 048
     Dates: start: 20130214, end: 20130227
  96. SOLITA T-3 [Concomitant]
     Dosage: 900 ML, QD
     Route: 041
     Dates: start: 20130214, end: 20130219
  97. SOLITA T-3 [Concomitant]
     Dosage: 600 ML, QD
     Route: 041
     Dates: start: 20130220, end: 20130221
  98. SOLITA T-3 [Concomitant]
     Dosage: 200 ML, QD
     Route: 041
     Dates: start: 20130222, end: 20130223
  99. ADONA [Concomitant]
     Dosage: 100 MG, QD
     Route: 041
     Dates: start: 20130214, end: 20130221
  100. TRANSAMIN [Concomitant]
     Dosage: 1 DF, QD
     Route: 041
     Dates: start: 20130214, end: 20130221
  101. ITRIZOLE [Concomitant]
     Dosage: 20 ML, QD
     Route: 048
     Dates: start: 20130216, end: 20130301

REACTIONS (1)
  - Drug eruption [Recovered/Resolved]
